FAERS Safety Report 8761307 (Version 2)
Quarter: 2012Q4

REPORT INFORMATION
  Report Type: Report from Study
  Country: BE (occurrence: BE)
  Receive Date: 20120830
  Receipt Date: 20120924
  Transmission Date: 20130627
  Serious: Yes (Hospitalization, Other)
  Sender: FDA-Public Use
  Company Number: BE-GENZYME-CLOF-1002276

PATIENT
  Age: 34 None
  Sex: Female
  Weight: 60 kg

DRUGS (23)
  1. EVOLTRA [Suspect]
     Indication: ACUTE LYMPHOCYTIC LEUKAEMIA
     Dosage: 50 mg, UNK
     Route: 042
     Dates: start: 20120710
  2. DEXAMETHASONE [Suspect]
     Indication: ACUTE LYMPHOCYTIC LEUKAEMIA
     Dosage: 4 mg, UNK
     Route: 037
     Dates: start: 20120712
  3. DEXAMETHASONE [Suspect]
     Dosage: 4 mg, UNK
     Route: 037
     Dates: start: 20120717
  4. DEXAMETHASONE [Suspect]
     Dosage: 4 mg, UNK
     Route: 037
     Dates: start: 20120724
  5. PREDNISOLONE [Suspect]
     Indication: ACUTE LYMPHOCYTIC LEUKAEMIA
     Dosage: 100 mg, UNK
     Route: 048
     Dates: start: 20120710
  6. PREDNISOLONE [Suspect]
     Dosage: 35 mg, bid
     Route: 048
     Dates: start: 20120717
  7. PREDNISOLONE [Suspect]
     Dosage: 35 mg, qd
     Route: 048
     Dates: start: 20120807
  8. PREDNISOLONE [Suspect]
     Dosage: 15 mg, qd
     Route: 048
     Dates: start: 20120809
  9. METHOTREXATE [Suspect]
     Indication: ACUTE LYMPHOCYTIC LEUKAEMIA
     Dosage: 15 mg, UNK
     Route: 037
     Dates: start: 20120712
  10. METHOTREXATE [Suspect]
     Dosage: 15 mg, UNK
     Route: 037
     Dates: start: 20120717
  11. METHOTREXATE [Suspect]
     Dosage: 15 mg, UNK
     Route: 037
     Dates: start: 20120724
  12. VINCRISTINE [Suspect]
     Indication: ACUTE LYMPHOCYTIC LEUKAEMIA
     Dosage: 2 mg, UNK
     Route: 042
     Dates: start: 20120717
  13. VINCRISTINE [Suspect]
     Dosage: 2 mg, UNK
     Route: 042
     Dates: start: 20120724
  14. VINCRISTINE [Suspect]
     Dosage: 2 mg, UNK
     Route: 042
     Dates: start: 20120731
  15. VINCRISTINE [Suspect]
     Dosage: 2 mg, UNK
     Route: 042
     Dates: start: 20120807
  16. PEG-ASPARAGINASE [Suspect]
     Indication: ACUTE LYMPHOCYTIC LEUKAEMIA
     Dosage: 1700 iu, UNK
     Route: 042
     Dates: start: 20120717
  17. DAUNORUBICINE [Suspect]
     Indication: ACUTE LYMPHOCYTIC LEUKAEMIA
     Dosage: 67 mg, UNK
     Route: 042
     Dates: start: 20120724
  18. DAUNORUBICINE [Suspect]
     Dosage: 67 mg, UNK
     Route: 042
     Dates: start: 20120731
  19. G-CSF [Suspect]
     Indication: ACUTE LYMPHOCYTIC LEUKAEMIA
     Dosage: 300 mcg, UNK
     Route: 058
     Dates: start: 20120723
  20. PANTOMED [Concomitant]
     Indication: DYSPEPSIA
     Dosage: 40 mg, qd
     Route: 048
     Dates: start: 20120719
  21. BACTRIM [Concomitant]
     Indication: INFECTION PROPHYLAXIS
     Dosage: UNK
     Route: 048
     Dates: start: 20120710
  22. ZOVIRAX [Concomitant]
     Indication: ANTIVIRAL PROPHYLAXIS
     Dosage: 800 mg, qd
     Route: 048
     Dates: start: 20120710
  23. MOVICOL [Concomitant]
     Indication: CONSTIPATION PROPHYLAXIS
     Dosage: 1 DF, prn (DF: bag)
     Route: 048
     Dates: start: 20120711

REACTIONS (2)
  - Haemangioma of liver [Unknown]
  - Appendiceal abscess [Recovered/Resolved]
